FAERS Safety Report 9750952 (Version 2)
Quarter: 2013Q4

REPORT INFORMATION
  Report Type: Spontaneous
  Country: US (occurrence: US)
  Receive Date: 20131212
  Receipt Date: 20131213
  Transmission Date: 20140711
  Serious: No
  Sender: FDA-Public Use
  Company Number: US-TEVA-399421USA

PATIENT
  Age: 37 Year
  Sex: Female
  Weight: 83.99 kg

DRUGS (4)
  1. PARAGARD 380A [Suspect]
     Indication: CONTRACEPTION
     Route: 015
     Dates: start: 20130404, end: 20130410
  2. PAXIL [Concomitant]
     Indication: DEPRESSION
  3. NEURONTIN [Concomitant]
  4. PROZAC [Concomitant]

REACTIONS (3)
  - Pelvic pain [Recovered/Resolved]
  - Chills [Recovered/Resolved]
  - Pyrexia [Recovered/Resolved]
